FAERS Safety Report 15906792 (Version 2)
Quarter: 2019Q1

REPORT INFORMATION
  Report Type: Spontaneous
  Country: DE (occurrence: DE)
  Receive Date: 20190204
  Receipt Date: 20190320
  Transmission Date: 20190417
  Serious: Yes (Hospitalization, Other)
  Sender: FDA-Public Use
  Company Number: DE-TEVA-2019-DE-1005046

PATIENT
  Age: 44 Year
  Sex: Female

DRUGS (33)
  1. PROPOFOL. [Concomitant]
     Active Substance: PROPOFOL
  2. ACC INJECTION [Concomitant]
  3. METOPROLOL. [Concomitant]
     Active Substance: METOPROLOL
  4. DISOPRIVAN [Concomitant]
     Active Substance: PROPOFOL
  5. KCL [Concomitant]
     Active Substance: POTASSIUM CHLORIDE
  6. KEPPRA [Concomitant]
     Active Substance: LEVETIRACETAM
  7. MCP-RATIOPHARM [Suspect]
     Active Substance: METOCLOPRAMIDE HYDROCHLORIDE
     Indication: PHAEOCHROMOCYTOMA
     Dosage: 30 MILLIGRAM DAILY;
     Route: 042
     Dates: start: 20150426, end: 20150504
  8. EBRANTIL [Concomitant]
     Active Substance: URAPIDIL
  9. AMLODIPIN [Concomitant]
     Active Substance: AMLODIPINE BESYLATE
  10. PANTOPRAZOL [Concomitant]
     Active Substance: PANTOPRAZOLE SODIUM
  11. BIFITERAL [Concomitant]
     Active Substance: LACTULOSE
  12. PARACEFAN [Concomitant]
     Active Substance: CLONIDINE
  13. SUFENTA [Concomitant]
     Active Substance: SUFENTANIL CITRATE
  14. RANITIC [Concomitant]
     Active Substance: RANITIDINE HYDROCHLORIDE
  15. MULTIBIONTA [Concomitant]
     Active Substance: MINERALS\PROBIOTICS NOS\VITAMINS
  16. BELOC ZOK MITE [Concomitant]
     Active Substance: METOPROLOL SUCCINATE
  17. AMPICILLIN/SULBACTAM [Concomitant]
     Active Substance: AMPICILLIN SODIUM\SULBACTAM SODIUM
  18. PERFALGAN [Concomitant]
     Active Substance: ACETAMINOPHEN
  19. INSUMAN RAPID [Concomitant]
     Active Substance: INSULIN HUMAN
  20. NEURO-RATIOPHARM FILMTABLETTEN [Concomitant]
  21. DORMICUM [Concomitant]
  22. ALDACTONE [Concomitant]
     Active Substance: SPIRONOLACTONE
  23. ERGENYL [Concomitant]
     Active Substance: VALPROIC ACID
  24. TOREM [Concomitant]
     Active Substance: TORSEMIDE
  25. DELIX [Concomitant]
  26. KALINOR [Concomitant]
  27. NEXIUM [Concomitant]
     Active Substance: ESOMEPRAZOLE MAGNESIUM
  28. DOXAZOSIN [Concomitant]
     Active Substance: DOXAZOSIN\DOXAZOSIN MESYLATE
  29. PANTOZOL [Concomitant]
     Active Substance: PANTOPRAZOLE SODIUM
  30. NEPRESOL [Concomitant]
  31. CLEXANE [Concomitant]
     Active Substance: ENOXAPARIN SODIUM
  32. FURESIS [Concomitant]
     Active Substance: FUROSEMIDE
  33. TRANEXAMSAEURE [Concomitant]
     Active Substance: TRANEXAMIC ACID

REACTIONS (9)
  - Coma [Recovered/Resolved]
  - Aphasia [Not Recovered/Not Resolved]
  - Blindness [Not Recovered/Not Resolved]
  - Cerebral haemorrhage [Unknown]
  - Spinal cord haemorrhage [Unknown]
  - Retinopathy hypertensive [Not Recovered/Not Resolved]
  - Blood urine present [Recovered/Resolved]
  - Hypertensive crisis [Recovered/Resolved]
  - Hand-eye coordination impaired [Not Recovered/Not Resolved]

NARRATIVE: CASE EVENT DATE: 201504
